FAERS Safety Report 16474995 (Version 2)
Quarter: 2019Q2

REPORT INFORMATION
  Report Type: Spontaneous
  Country: KR (occurrence: KR)
  Receive Date: 20190625
  Receipt Date: 20190628
  Transmission Date: 20190711
  Serious: Yes (Hospitalization)
  Sender: FDA-Public Use
  Company Number: KR-009507513-1906KOR008676

PATIENT
  Sex: Female

DRUGS (10)
  1. KEROMIN [Concomitant]
     Dosage: 30 MG/ 1 ML; QUANTITY: 1 DAYS: 1
     Dates: start: 20190607, end: 20190607
  2. YUHAN DEXAMETHASONE (DEXAMETHASONE) [Concomitant]
     Dosage: QUANTITY: 1 DAYS: 1
     Dates: start: 20190607, end: 20190607
  3. PENIRAMIN [Concomitant]
     Dosage: 4 MG/2 ML QUANTITY: 2 DAYS: 1
     Dates: start: 20190607, end: 20190607
  4. YUHAN DEXAMETHASONE (DEXAMETHASONE) [Concomitant]
     Dosage: QUANTITY: 3 DAYS: 1
     Dates: start: 20190607, end: 20190607
  5. KEYTRUDA [Suspect]
     Active Substance: PEMBROLIZUMAB
     Dosage: UNK UNK, Q3W
  6. SODIUM CHLORIDE. [Concomitant]
     Active Substance: SODIUM CHLORIDE
     Dosage: QUANTITY: 1 DAYS: 1
     Dates: start: 20190607, end: 20190607
  7. CIMETIDINE [Concomitant]
     Active Substance: CIMETIDINE
     Dosage: QUANTITY: 1 DAYS: 1
     Dates: start: 20190607, end: 20190607
  8. KEYTRUDA [Suspect]
     Active Substance: PEMBROLIZUMAB
     Indication: CERVIX CARCINOMA RECURRENT
     Dosage: UNK
     Dates: start: 20190607, end: 20190607
  9. PALONOSETRON HYDROCHLORIDE. [Concomitant]
     Active Substance: PALONOSETRON HYDROCHLORIDE
     Dosage: FORMULATION: 0.28 MG/5 ML; QUANTITY: 1 DAYS: 1
     Dates: start: 20190607, end: 20190607
  10. FERINJECT [Concomitant]
     Active Substance: FERRIC CARBOXYMALTOSE
     Dosage: QUANTITY: 1 DAYS: 1
     Dates: start: 20190607, end: 20190607

REACTIONS (2)
  - Adverse event [Unknown]
  - Product use in unapproved indication [Unknown]

NARRATIVE: CASE EVENT DATE: 201906
